FAERS Safety Report 4933737-6 (Version None)
Quarter: 2006Q1

REPORT INFORMATION
  Report Type: 
  Country: None (occurrence: None)
  Receive Date: 20060306
  Receipt Date: 20050324
  Transmission Date: 20060701
  Serious: Yes (Hospitalization)
  Sender: FDA-Public Use
  Company Number: US-MERCK-0503USA04584

PATIENT
  Age: 39 Year
  Sex: Female
  Weight: 59 kg

DRUGS (1)
  1. VIOXX [Suspect]
     Indication: RHEUMATOID ARTHRITIS
     Route: 048
     Dates: start: 20010301, end: 20030901

REACTIONS (7)
  - ARTHROPATHY [None]
  - CHEST DISCOMFORT [None]
  - DYSPNOEA [None]
  - EMPHYSEMA [None]
  - INJURY [None]
  - SJOGREN'S SYNDROME [None]
  - SLEEP APNOEA SYNDROME [None]
